FAERS Safety Report 6871504-7 (Version None)
Quarter: 2010Q3

REPORT INFORMATION
  Report Type: 
  Country: None (occurrence: None)
  Receive Date: 20100723
  Receipt Date: 20100713
  Transmission Date: 20110219
  Serious: Yes (Death, Hospitalization, Other)
  Sender: FDA-Public Use
  Company Number: BR-PFIZER INC-2010087558

PATIENT
  Age: 67 Year
  Sex: Male
  Weight: 74 kg

DRUGS (1)
  1. VIAGRA [Suspect]
     Dosage: UNK MG, UNK
     Route: 048
     Dates: start: 20081217

REACTIONS (4)
  - ACUTE MYOCARDIAL INFARCTION [None]
  - DEATH [None]
  - DEPRESSION [None]
  - HYPERTENSION [None]
